FAERS Safety Report 8831816 (Version 4)
Quarter: 2013Q2

REPORT INFORMATION
  Report Type: Spontaneous
  Country: US (occurrence: US)
  Receive Date: 20121008
  Receipt Date: 20130410
  Transmission Date: 20140414
  Serious: Yes (Hospitalization, Other)
  Sender: FDA-Public Use
  Company Number: US-009507513-1111USA00504

PATIENT
  Sex: Female
  Weight: 78.5 kg

DRUGS (6)
  1. FOSAMAX [Suspect]
     Indication: OSTEOPOROSIS
     Dosage: 10 MG, UNK
     Route: 048
     Dates: start: 1997, end: 1999
  2. FOSAMAX [Suspect]
     Indication: OSTEOPOROSIS
     Dosage: 70 MG, UNK
     Route: 048
     Dates: start: 20060104, end: 20080322
  3. ASCORBIC ACID [Concomitant]
     Dosage: 250 MG, QD
     Dates: start: 1990
  4. VITAMIN D (UNSPECIFIED) [Concomitant]
     Dosage: 100, UNK
     Dates: start: 1990
  5. CALCIUM (UNSPECIFIED) [Concomitant]
     Dosage: 600 MG, UNK
     Dates: start: 1990
  6. OMEGA-3 MARINE TRIGLYCERIDES [Concomitant]
     Dosage: 1000 MG, QD

REACTIONS (35)
  - Intramedullary rod insertion [Unknown]
  - Colectomy [Unknown]
  - Convulsion [Unknown]
  - Femur fracture [Unknown]
  - Femur fracture [Recovering/Resolving]
  - Femur fracture [Unknown]
  - Dental implantation [Unknown]
  - Hypercholesterolaemia [Not Recovered/Not Resolved]
  - Arthritis [Unknown]
  - Venous insufficiency [Not Recovered/Not Resolved]
  - Osteopenia [Unknown]
  - Large intestine polyp [Unknown]
  - Adenomatous polyposis coli [Unknown]
  - Tendon disorder [Unknown]
  - Osteoarthritis [Unknown]
  - Lipids increased [Unknown]
  - Spinal deformity [Unknown]
  - Spondylolisthesis [Unknown]
  - Intervertebral disc protrusion [Unknown]
  - Nerve compression [Unknown]
  - Peripheral vascular disorder [Unknown]
  - Osteoarthritis [Unknown]
  - Hysterectomy [Unknown]
  - Lower limb fracture [Unknown]
  - Haemorrhagic anaemia [Unknown]
  - Urinary tract infection [Unknown]
  - Skin irritation [Unknown]
  - Contusion [Unknown]
  - Vitamin D deficiency [Unknown]
  - Local swelling [Unknown]
  - Headache [Unknown]
  - Pain in extremity [Unknown]
  - Constipation [Unknown]
  - Pain in extremity [Unknown]
  - Pruritus [Unknown]
